FAERS Safety Report 17478938 (Version 17)
Quarter: 2023Q2

REPORT INFORMATION
  Report Type: Report from Study
  Country: DE (occurrence: DE)
  Receive Date: 20200228
  Receipt Date: 20230516
  Transmission Date: 20230722
  Serious: Yes (Death, Life-Threatening, Hospitalization, Other)
  Sender: FDA-Public Use
  Company Number: DE-002147023-NVSC2019DE060731

PATIENT
  Age: 63 Year
  Sex: Female
  Weight: 73 kg

DRUGS (18)
  1. ANASTROZOLE [Suspect]
     Active Substance: ANASTROZOLE
     Indication: Breast cancer metastatic
     Dosage: 1 MILLIGRAM, QD
     Route: 048
     Dates: start: 20191106, end: 20191123
  2. FULVESTRANT [Suspect]
     Active Substance: FULVESTRANT
     Indication: Breast cancer metastatic
     Dosage: 250 MG, Q4W (LAST ADMIN DATE WAS 06 JAN 2021)
     Route: 030
     Dates: end: 20200106
  3. FULVESTRANT [Suspect]
     Active Substance: FULVESTRANT
     Dosage: 600 MG, QD (SCHEME 21 DAYS INTAKE, 7 DAYS PAUSE)
     Route: 030
     Dates: start: 20200106, end: 20200106
  4. FULVESTRANT [Suspect]
     Active Substance: FULVESTRANT
     Dosage: UNK
     Route: 065
     Dates: start: 20220321
  5. PIPERACILLIN SODIUM\TAZOBACTAM SODIUM [Suspect]
     Active Substance: PIPERACILLIN SODIUM\TAZOBACTAM SODIUM
     Indication: Product used for unknown indication
     Dosage: 3 DF, TID (START:24-NOV-2019)
     Route: 065
     Dates: end: 20191129
  6. PIPERACILLIN SODIUM\TAZOBACTAM SODIUM [Suspect]
     Active Substance: PIPERACILLIN SODIUM\TAZOBACTAM SODIUM
     Dosage: UNK UNK, QD (TID)
     Route: 065
     Dates: start: 20191124, end: 20191129
  7. KISQALI [Suspect]
     Active Substance: RIBOCICLIB
     Indication: Breast cancer metastatic
     Dosage: 600 MG, QD (SCHEME 21 DAYS INTAKE, 7 DAYS PAUSE)
     Route: 048
     Dates: start: 20191106, end: 20191123
  8. KISQALI [Suspect]
     Active Substance: RIBOCICLIB
     Dosage: UNK
     Route: 065
     Dates: start: 20220321
  9. ELIQUIS [Suspect]
     Active Substance: APIXABAN
     Indication: Thrombosis
     Dosage: UNK, START DATE: 16-MAR-2020
     Route: 065
     Dates: start: 20200316
  10. METAMIZOLE [Concomitant]
     Active Substance: METAMIZOLE
     Indication: Pain
     Dosage: 500 MG, QD
     Route: 048
     Dates: start: 20191016
  11. OXYCODONE [Concomitant]
     Active Substance: OXYCODONE
     Indication: Pain
     Dosage: 10 MILLIGRAM, QD
     Route: 048
     Dates: start: 20191030
  12. POLYETHYLENE GLYCOLS [Concomitant]
     Active Substance: POLYETHYLENE GLYCOLS
     Indication: Constipation
     Dosage: 1 DOSAGE FORM, QD
     Route: 048
     Dates: start: 20191023
  13. DEXAMETHASONE [Concomitant]
     Active Substance: DEXAMETHASONE
     Indication: Product used for unknown indication
     Dosage: 8 MILLIGRAM, QD
     Route: 048
     Dates: start: 20191016
  14. DEXAMETHASONE [Concomitant]
     Active Substance: DEXAMETHASONE
     Dosage: 1 DOSAGE FORM, QD (0.5 DF, BID)
     Route: 048
     Dates: start: 20191016
  15. PANTOPRAZOLE [Concomitant]
     Active Substance: PANTOPRAZOLE
     Indication: Prophylaxis
     Dosage: 40 MILLIGRAM, QD
     Route: 048
     Dates: start: 20191016
  16. Novalgin [Concomitant]
     Indication: Pain
     Dosage: 2000 MILLIGRAM, QD 500 MG, QID
     Route: 048
     Dates: start: 20191016
  17. PALBOCICLIB [Concomitant]
     Active Substance: PALBOCICLIB
     Indication: Product used for unknown indication
     Dosage: UNK
     Route: 065
  18. XGEVA [Concomitant]
     Active Substance: DENOSUMAB
     Indication: Product used for unknown indication
     Dosage: 120 MILLIGRAM (START:17-JAN-2020)
     Route: 065
     Dates: start: 20200117

REACTIONS (27)
  - Death [Fatal]
  - Neoplasm [Fatal]
  - Acute hepatic failure [Unknown]
  - Liver function test increased [Recovering/Resolving]
  - Ascites [Recovering/Resolving]
  - Pyrexia [Recovered/Resolved]
  - Pruritus [Recovered/Resolved]
  - General physical health deterioration [Recovered/Resolved]
  - Thrombocytopenia [Not Recovered/Not Resolved]
  - Pancytopenia [Recovered/Resolved]
  - Ovarian cancer [Recovering/Resolving]
  - Second primary malignancy [Unknown]
  - Retroperitoneal cancer [Unknown]
  - Peritoneal neoplasm [Unknown]
  - Thrombosis [Recovering/Resolving]
  - White blood cell disorder [Recovered/Resolved]
  - Haemoglobin decreased [Recovered/Resolved]
  - Hypersensitivity [Recovered/Resolved]
  - Diarrhoea [Recovered/Resolved]
  - Rash [Recovered/Resolved]
  - Vomiting [Recovered/Resolved]
  - Nausea [Recovered/Resolved]
  - Fatigue [Unknown]
  - Dysphagia [Unknown]
  - Abdominal wall cyst [Unknown]
  - Pleural effusion [Unknown]
  - Hepatic cyst [Unknown]

NARRATIVE: CASE EVENT DATE: 20191030
